FAERS Safety Report 7265270-3 (Version None)
Quarter: 2011Q1

REPORT INFORMATION
  Report Type: 
  Country: None (occurrence: None)
  Receive Date: 20110131
  Receipt Date: 20110121
  Transmission Date: 20110831
  Serious: Yes (Other)
  Sender: FDA-Public Use
  Company Number: JP-JNJFOC-20110106264

PATIENT

DRUGS (1)
  1. DOXIL [Suspect]
     Indication: ILL-DEFINED DISORDER
     Route: 042

REACTIONS (1)
  - INTERSTITIAL LUNG DISEASE [None]
